FAERS Safety Report 19895324 (Version 1)
Quarter: 2021Q3

REPORT INFORMATION
  Report Type: Spontaneous
  Country: US (occurrence: US)
  Receive Date: 20210928
  Receipt Date: 20210928
  Transmission Date: 20211014
  Serious: Yes (Death)
  Sender: FDA-Public Use
  Company Number: None

PATIENT
  Age: 61 Year
  Sex: Male

DRUGS (35)
  1. TAMSULOSIN [Concomitant]
     Active Substance: TAMSULOSIN
  2. TACROLIMUS 1MG [Suspect]
     Active Substance: TACROLIMUS
     Indication: RENAL TRANSPLANT
     Route: 048
     Dates: start: 20210126
  3. ALLOPURINOL. [Concomitant]
     Active Substance: ALLOPURINOL
  4. ELIQUIS [Concomitant]
     Active Substance: APIXABAN
  5. LOKELAM [Concomitant]
  6. ACC?CHECCK GIDE TEST STRIPS [Concomitant]
  7. B?D NANO  2ND GEN PEN NEEDLES [Concomitant]
  8. DIFICID [Concomitant]
     Active Substance: FIDAXOMICIN
  9. INSULIN ASPART FLEXPEN INJECTION [Concomitant]
  10. POLYETH GLYCOL [Concomitant]
  11. PREDNISONE. [Concomitant]
     Active Substance: PREDNISONE
  12. CARVEDILOL. [Concomitant]
     Active Substance: CARVEDILOL
  13. FAMOTIDINE. [Concomitant]
     Active Substance: FAMOTIDINE
  14. ZOFRAN [Concomitant]
     Active Substance: ONDANSETRON HYDROCHLORIDE
  15. DOCUSATE SODIUM. [Concomitant]
     Active Substance: DOCUSATE SODIUM
  16. MYCOPHENOLIC ACID. [Concomitant]
     Active Substance: MYCOPHENOLIC ACID
  17. NEOMUCIN/POLLU/HC OTIC SUSPENSION [Concomitant]
  18. ACCU?CHECK FASTCLIX LANCETS [Concomitant]
  19. ATORVASTATIN [Concomitant]
     Active Substance: ATORVASTATIN
  20. MAG?OXIDE [Concomitant]
     Active Substance: MAGNESIUM OXIDE
  21. MYCHOPHENOLATE [Concomitant]
  22. VALGANCICLOVIR. [Concomitant]
     Active Substance: VALGANCICLOVIR
  23. MYCOPHENOLIC ACID (MYCOPHENOLATE SODIUM) [Suspect]
     Active Substance: MYCOPHENOLATE SODIUM
     Indication: RENAL TRANSPLANT
     Route: 048
     Dates: start: 20210126
  24. CIPRODEX [Concomitant]
     Active Substance: CIPROFLOXACIN HYDROCHLORIDE\DEXAMETHASONE
  25. DOXAZOSIN [Concomitant]
     Active Substance: DOXAZOSIN MESYLATE
  26. FLICONAZOLE [Concomitant]
  27. LANTUS SOLOSTAR [Concomitant]
     Active Substance: INSULIN GLARGINE
  28. TRAMADOL. [Concomitant]
     Active Substance: TRAMADOL
  29. ACCU?CHECK GUIDE CARE KIT [Concomitant]
  30. DILTIAZEM. [Concomitant]
     Active Substance: DILTIAZEM
  31. GABAPENTIN. [Concomitant]
     Active Substance: GABAPENTIN
  32. NORCO [Concomitant]
     Active Substance: ACETAMINOPHEN\HYDROCODONE BITARTRATE
  33. BACTRIM [Concomitant]
     Active Substance: SULFAMETHOXAZOLE\TRIMETHOPRIM
  34. TACROLIMUS. [Concomitant]
     Active Substance: TACROLIMUS
  35. MYCOPHENOLIC [Concomitant]
     Active Substance: MYCOPHENOLIC ACID

REACTIONS (1)
  - Cerebrovascular accident [None]

NARRATIVE: CASE EVENT DATE: 20210910
